FAERS Safety Report 25323457 (Version 1)
Quarter: 2025Q2

REPORT INFORMATION
  Report Type: Report from Study
  Country: US (occurrence: US)
  Receive Date: 20250516
  Receipt Date: 20250516
  Transmission Date: 20250716
  Serious: Yes (Other)
  Sender: MYLAN
  Company Number: US-MYLANLABS-2025M1040789

PATIENT
  Sex: Female

DRUGS (2)
  1. GLATIRAMER ACETATE [Suspect]
     Active Substance: GLATIRAMER ACETATE
     Indication: Multiple sclerosis
  2. GLATIRAMER ACETATE [Suspect]
     Active Substance: GLATIRAMER ACETATE

REACTIONS (1)
  - Multiple sclerosis relapse [Unknown]
